FAERS Safety Report 11223812 (Version 2)
Quarter: 2016Q1

REPORT INFORMATION
  Report Type: Spontaneous
  Country: US (occurrence: US)
  Receive Date: 20150629
  Receipt Date: 20160114
  Transmission Date: 20160525
  Serious: Yes (Other)
  Sender: FDA-Public Use
  Company Number: US-ROCHE-1600165

PATIENT
  Sex: Female
  Weight: 104.42 kg

DRUGS (2)
  1. XOLAIR [Suspect]
     Active Substance: OMALIZUMAB
     Route: 058
  2. XOLAIR [Suspect]
     Active Substance: OMALIZUMAB
     Indication: ASTHMA
     Route: 058
     Dates: start: 2011, end: 2013

REACTIONS (9)
  - Nerve compression [Unknown]
  - Headache [Not Recovered/Not Resolved]
  - Arthritis [Recovering/Resolving]
  - Cough [Recovering/Resolving]
  - Arthritis [Unknown]
  - Pain [Unknown]
  - Nasal dryness [Not Recovered/Not Resolved]
  - Respiratory tract congestion [Not Recovered/Not Resolved]
  - Sinus headache [Not Recovered/Not Resolved]
